FAERS Safety Report 8463639-2 (Version None)
Quarter: 2012Q2

REPORT INFORMATION
  Report Type: 
  Country: None (occurrence: None)
  Receive Date: 20120625
  Receipt Date: 20120615
  Transmission Date: 20120825
  Serious: Yes (Hospitalization, Other)
  Sender: FDA-Public Use
  Company Number: RU-ROCHE-1075628

PATIENT
  Age: 10 Year
  Sex: Female

DRUGS (4)
  1. ACTEMRA [Suspect]
     Indication: JUVENILE ARTHRITIS
     Route: 042
     Dates: start: 20101201
  2. ETHAMBUTOL HYDROCHLORIDE [Concomitant]
  3. ISONIAZID [Concomitant]
  4. RIFAMPICIN [Concomitant]

REACTIONS (3)
  - COMPUTERISED TOMOGRAM ABNORMAL [None]
  - PNEUMONIA [None]
  - TUBERCULIN TEST POSITIVE [None]
